FAERS Safety Report 10288777 (Version 3)
Quarter: 2017Q3

REPORT INFORMATION
  Report Type: Spontaneous
  Country: GB (occurrence: GB)
  Receive Date: 20140709
  Receipt Date: 20170726
  Transmission Date: 20171127
  Serious: Yes (Hospitalization, Other)
  Sender: FDA-Public Use
  Company Number: GB-BAXTER-2014BAX028441

PATIENT
  Age: 20 Year
  Sex: Male
  Weight: 76 kg

DRUGS (18)
  1. SODIUM CHLORIDE INTRAVENOUS INFUSION BP 0.9%W/V [Suspect]
     Active Substance: SODIUM CHLORIDE
     Dosage: FOR 1 DAY
     Route: 042
     Dates: start: 20140415, end: 20140415
  2. SODIUM BICARBONATE. [Concomitant]
     Active Substance: SODIUM BICARBONATE
     Indication: PRODUCT USED FOR UNKNOWN INDICATION
     Route: 065
  3. FILGRASTIM [Concomitant]
     Active Substance: FILGRASTIM
     Indication: PRODUCT USED FOR UNKNOWN INDICATION
     Route: 065
  4. APREPITANT. [Concomitant]
     Active Substance: APREPITANT
     Indication: PRODUCT USED FOR UNKNOWN INDICATION
     Route: 065
  5. METHOTREXATE. [Suspect]
     Active Substance: METHOTREXATE
     Dosage: MAP CHEMOTHERAPY
     Route: 042
  6. DEXAMETHASONE. [Concomitant]
     Active Substance: DEXAMETHASONE
     Indication: PRODUCT USED FOR UNKNOWN INDICATION
     Route: 065
  7. METHOTREXATE. [Suspect]
     Active Substance: METHOTREXATE
     Indication: OSTEOSARCOMA
     Dosage: 24 G, MAP CHEMOTHERAPY
     Route: 042
     Dates: start: 20131202
  8. SODIUM CHLORIDE INTRAVENOUS INFUSION BP 0.9%W/V [Suspect]
     Active Substance: SODIUM CHLORIDE
     Route: 042
  9. CISPLATIN. [Suspect]
     Active Substance: CISPLATIN
     Indication: OSTEOSARCOMA
     Dosage: MAP CHEMOTHERAPY
     Route: 042
     Dates: start: 20130801
  10. MEPACT [Suspect]
     Active Substance: MIFAMURTIDE
     Indication: OSTEOSARCOMA
     Route: 042
     Dates: start: 20140317, end: 20140415
  11. ONDANSETRON [Concomitant]
     Active Substance: ONDANSETRON
     Indication: PRODUCT USED FOR UNKNOWN INDICATION
     Route: 065
  12. CALCIUM LEVOFOLINATE [Concomitant]
     Active Substance: LEVOLEUCOVORIN CALCIUM
     Indication: PRODUCT USED FOR UNKNOWN INDICATION
     Route: 065
  13. SODIUM CHLORIDE INTRAVENOUS INFUSION BP 0.9%W/V [Suspect]
     Active Substance: SODIUM CHLORIDE
     Indication: OSTEOSARCOMA
     Route: 042
     Dates: start: 20131202
  14. METHOTREXATE. [Suspect]
     Active Substance: METHOTREXATE
     Dosage: FOR 1 DAY, MAP CHEMOTHERAPY
     Route: 042
     Dates: start: 20140415, end: 20140415
  15. DOXORUBICIN [Suspect]
     Active Substance: DOXORUBICIN
     Indication: OSTEOSARCOMA
     Dosage: 48 HOURS, MAP CHEMOTHERAPY
     Route: 042
  16. PARACETAMOL [Concomitant]
     Active Substance: ACETAMINOPHEN
     Indication: PRODUCT USED FOR UNKNOWN INDICATION
     Route: 065
  17. MEPACT [Suspect]
     Active Substance: MIFAMURTIDE
     Dosage: RE-INTRODUCED DOSE
     Route: 042
  18. METOCLOPRAMIDE. [Concomitant]
     Active Substance: METOCLOPRAMIDE
     Indication: PRODUCT USED FOR UNKNOWN INDICATION
     Route: 065

REACTIONS (7)
  - Drug clearance decreased [Recovered/Resolved]
  - Blood creatinine increased [Not Recovered/Not Resolved]
  - Potentiating drug interaction [Recovered/Resolved]
  - Drug dispensing error [Unknown]
  - Drug level increased [Recovered/Resolved]
  - Wrong drug administered [Unknown]
  - Renal impairment [Recovered/Resolved]

NARRATIVE: CASE EVENT DATE: 20140415
